FAERS Safety Report 10520528 (Version 9)
Quarter: 2016Q1

REPORT INFORMATION
  Report Type: Report from Study
  Country: US (occurrence: US)
  Receive Date: 20141015
  Receipt Date: 20160307
  Transmission Date: 20160525
  Serious: Yes (Other)
  Sender: FDA-Public Use
  Company Number: PHHY2014US134066

PATIENT
  Age: 0 Day
  Sex: Female
  Weight: 2.52 kg

DRUGS (14)
  1. SERTRALINE [Concomitant]
     Active Substance: SERTRALINE HYDROCHLORIDE
     Indication: FOETAL EXPOSURE DURING PREGNANCY
     Route: 064
  2. SYMBICORT [Suspect]
     Active Substance: BUDESONIDE\FORMOTEROL FUMARATE DIHYDRATE
     Indication: FOETAL EXPOSURE DURING PREGNANCY
     Dosage: MATERNAL DOSE 2 PUFFS TWICE DAILY
     Route: 064
     Dates: start: 20130201
  3. PREDNISONE. [Concomitant]
     Active Substance: PREDNISONE
     Indication: FOETAL EXPOSURE DURING PREGNANCY
     Route: 064
  4. PEPCID [Concomitant]
     Active Substance: FAMOTIDINE
     Indication: FOETAL EXPOSURE DURING PREGNANCY
     Route: 064
  5. PROAIR (FLUTICASONE PROPIONATE) [Suspect]
     Active Substance: FLUTICASONE PROPIONATE
     Indication: FOETAL EXPOSURE DURING PREGNANCY
     Dosage: MATERNAL DOSE 2.0 PUFFS TWICE DAILY
     Route: 064
     Dates: start: 20060101
  6. COPAXONE [Concomitant]
     Active Substance: GLATIRAMER ACETATE
     Indication: FOETAL EXPOSURE DURING PREGNANCY
     Route: 064
  7. AMPYRA [Concomitant]
     Active Substance: DALFAMPRIDINE
     Indication: FOETAL EXPOSURE DURING PREGNANCY
     Route: 064
  8. AVONEX [Suspect]
     Active Substance: INTERFERON BETA-1A
     Indication: FOETAL EXPOSURE DURING PREGNANCY
     Dosage: MATERNAL DOSE
     Route: 064
     Dates: start: 20140614
  9. ACICLOVIR [Suspect]
     Active Substance: ACYCLOVIR
     Indication: FOETAL EXPOSURE DURING PREGNANCY
     Dosage: MATERNAL DOSE: 400 MG, BID
     Route: 064
     Dates: start: 20140614
  10. PRENATAL [Suspect]
     Active Substance: VITAMINS
     Indication: FOETAL EXPOSURE DURING PREGNANCY
     Dosage: MATERNAL DOSE, ONCE DAILY
     Route: 064
     Dates: start: 20131208
  11. GILENYA [Suspect]
     Active Substance: FINGOLIMOD HYDROCHLORIDE
     Indication: FOETAL EXPOSURE DURING PREGNANCY
     Dosage: MATERNAL DOSE: 0.5MG/DAY
     Route: 064
     Dates: start: 20130201, end: 20131210
  12. REBIF [Suspect]
     Active Substance: INTERFERON BETA-1A
     Indication: FOETAL EXPOSURE DURING PREGNANCY
     Dosage: MATERNAL DOSE
     Route: 064
  13. IRON [Suspect]
     Active Substance: IRON
     Indication: FOETAL EXPOSURE DURING PREGNANCY
     Dosage: MATERNAL DOSE:28 MG ONCE DAILY
     Route: 064
     Dates: start: 20140613
  14. AMANTADINE [Concomitant]
     Active Substance: AMANTADINE
     Indication: FOETAL EXPOSURE DURING PREGNANCY
     Route: 064

REACTIONS (3)
  - Cardiac murmur [Not Recovered/Not Resolved]
  - Foetal exposure during pregnancy [Unknown]
  - Premature baby [Unknown]

NARRATIVE: CASE EVENT DATE: 20140724
